FAERS Safety Report 25787552 (Version 3)
Quarter: 2025Q3

REPORT INFORMATION
  Report Type: Spontaneous
  Country: EU (occurrence: EU)
  Receive Date: 20250910
  Receipt Date: 20250929
  Transmission Date: 20251021
  Serious: Yes (Other)
  Sender: DAIICHI
  Company Number: EU-DSJP-DS-2025-163475-DE

PATIENT
  Age: 72 Year
  Sex: Male
  Weight: 85 kg

DRUGS (8)
  1. EDOXABAN TOSYLATE [Suspect]
     Active Substance: EDOXABAN TOSYLATE
     Indication: Atrial fibrillation
     Dosage: 60 MG, QD
     Route: 065
     Dates: start: 20250825, end: 20250831
  2. EDOXABAN TOSYLATE [Suspect]
     Active Substance: EDOXABAN TOSYLATE
     Dosage: 30 MG, QD
     Route: 065
     Dates: start: 20250904
  3. EUTHYROX [Concomitant]
     Active Substance: LEVOTHYROXINE SODIUM
     Indication: Product used for unknown indication
     Dosage: 125 MG, QD (IN THE MORNING)
     Route: 065
  4. OMEPRAZOLE [Concomitant]
     Active Substance: OMEPRAZOLE
     Indication: Product used for unknown indication
     Dosage: 20 MG, QD (IN THE MORNING)
     Route: 065
  5. HYGROTON [Concomitant]
     Active Substance: CHLORTHALIDONE
     Indication: Product used for unknown indication
     Route: 065
  6. URAPIDIL [Concomitant]
     Active Substance: URAPIDIL
     Indication: Product used for unknown indication
     Route: 065
  7. DOPPELHERZ SYSTEM VITAMIN D3 + K2 [Concomitant]
     Indication: Supplementation therapy
     Route: 065
  8. MAGNESIUM + POTASSIUM 400 DOPPELHERZ [Concomitant]
     Indication: Supplementation therapy
     Route: 065

REACTIONS (8)
  - Heart rate irregular [Not Recovered/Not Resolved]
  - Therapy cessation [Unknown]
  - Apnoea [Unknown]
  - Drug intolerance [Unknown]
  - Anxiety [Unknown]
  - Sleep disorder [Unknown]
  - Heart rate irregular [Not Recovered/Not Resolved]
  - Wrong technique in product usage process [Not Recovered/Not Resolved]

NARRATIVE: CASE EVENT DATE: 20250825
